FAERS Safety Report 11093829 (Version 1)
Quarter: 2015Q2

REPORT INFORMATION
  Report Type: Spontaneous
  Country: US (occurrence: US)
  Receive Date: 20150506
  Receipt Date: 20150506
  Transmission Date: 20150821
  Serious: Yes (Hospitalization, Other)
  Sender: FDA-Public Use
  Company Number: US-BAYER-2015-179837

PATIENT
  Age: 82 Year
  Sex: Male

DRUGS (23)
  1. SINGULAIR [Concomitant]
     Active Substance: MONTELUKAST SODIUM
     Dosage: 10 MG, QD
  2. LISINOPRIL. [Suspect]
     Active Substance: LISINOPRIL
     Dosage: 5 MG, QD
  3. GLYCERYL TRINITRATE [Concomitant]
     Active Substance: NITROGLYCERIN
     Indication: CARDIAC DISORDER
     Dosage: 4 MG, UNK
  4. MORPHINE [Concomitant]
     Active Substance: MORPHINE
  5. FLUTICASONE [Concomitant]
     Active Substance: FLUTICASONE\FLUTICASONE PROPIONATE
  6. CIPRO [Suspect]
     Active Substance: CIPROFLOXACIN HYDROCHLORIDE
     Dosage: UNK
  7. LIDODERM [Concomitant]
     Active Substance: LIDOCAINE
     Indication: PAIN
  8. SALBUTAMOL [Concomitant]
     Active Substance: ALBUTEROL
     Dosage: UNK, 5ID
     Route: 055
  9. TRAZODONE [Concomitant]
     Active Substance: TRAZODONE HYDROCHLORIDE
     Dosage: 25 MG, UNK
  10. IPRATROPIUM BROMIDE. [Concomitant]
     Active Substance: IPRATROPIUM BROMIDE
     Dosage: UNK, 5ID
     Route: 055
  11. LORATADINE. [Concomitant]
     Active Substance: LORATADINE
     Dosage: 10 MG, UNK
  12. FAMOTIDINE. [Concomitant]
     Active Substance: FAMOTIDINE
     Dosage: 40 MG, UNK
  13. PULMICORT RESPULES [Suspect]
     Active Substance: BUDESONIDE
     Indication: LUNG DISORDER
     Dosage: UNK UNK, BID
  14. ATENOLOL. [Suspect]
     Active Substance: ATENOLOL
     Dosage: 50 MG, QD
     Route: 055
  15. MORPHINE SULPHATE [Concomitant]
     Active Substance: MORPHINE SULFATE
  16. SIMVASTATIN. [Concomitant]
     Active Substance: SIMVASTATIN
     Dosage: 20 MG, UNK
  17. TAMSULOSIN HYDROCHLORIDE. [Concomitant]
     Active Substance: TAMSULOSIN HYDROCHLORIDE
     Dosage: 4 MG, QD
  18. LORAZEPAM. [Concomitant]
     Active Substance: LORAZEPAM
     Dosage: 5 MG, UNK
  19. PARACETAMOL [Concomitant]
     Active Substance: ACETAMINOPHEN
     Dosage: 650 MG, PRN
  20. GUAIFENESIN. [Concomitant]
     Active Substance: GUAIFENESIN
  21. PREDNISONE. [Concomitant]
     Active Substance: PREDNISONE
     Indication: BORRELIA INFECTION
     Dosage: 10 MG, QD
     Dates: start: 1976
  22. ACETYLSALICYLIC ACID [Concomitant]
     Active Substance: ASPIRIN
     Indication: CARDIAC DISORDER
     Dosage: 81 MG, UNK
  23. SALBUTAMOL SULFATE [Concomitant]
     Active Substance: ALBUTEROL SULFATE
     Indication: ASTHMA

REACTIONS (7)
  - Confusional state [Recovered/Resolved]
  - Dyspnoea [Recovered/Resolved]
  - Diabetes mellitus [Unknown]
  - Drug hypersensitivity [None]
  - Off label use [None]
  - Lung infection [Recovered/Resolved]
  - Oral discomfort [None]

NARRATIVE: CASE EVENT DATE: 2013
